FAERS Safety Report 7287436-9 (Version None)
Quarter: 2011Q1

REPORT INFORMATION
  Report Type: 
  Country: None (occurrence: None)
  Receive Date: 20110208
  Receipt Date: 20110208
  Transmission Date: 20110831
  Serious: Yes (Hospitalization)
  Sender: FDA-Public Use
  Company Number: None

PATIENT
  Sex: Male

DRUGS (1)
  1. ENBREL 50MG Q WK. 5-6 AMGEN [Suspect]
     Indication: PSORIATIC ARTHROPATHY
     Dosage: 50MG QWK S-C
     Route: 058

REACTIONS (1)
  - MYOCARDIAL INFARCTION [None]
